FAERS Safety Report 13715352 (Version 2)
Quarter: 2018Q1

REPORT INFORMATION
  Report Type: Spontaneous
  Country: GB (occurrence: GB)
  Receive Date: 20170704
  Receipt Date: 20180108
  Transmission Date: 20180508
  Serious: Yes (Hospitalization)
  Sender: FDA-Public Use
  Company Number: GB-TEVA-781798ACC

PATIENT
  Age: 24 Year
  Sex: Female

DRUGS (9)
  1. LORAZEPAM. [Concomitant]
     Active Substance: LORAZEPAM
  2. HYOSCINE BUTYLBROMIDE [Concomitant]
     Active Substance: BUTYLSCOPOLAMINE
  3. LEVOTHYROXINE SODIUM. [Concomitant]
     Active Substance: LEVOTHYROXINE SODIUM
  4. QUETIAPINE. [Concomitant]
     Active Substance: QUETIAPINE
  5. HALOPERIDOL. [Suspect]
     Active Substance: HALOPERIDOL
     Route: 048
     Dates: start: 20170604, end: 20170608
  6. FLUCLOXACILLINE [Concomitant]
     Active Substance: FLUCLOXACILLIN
  7. PROMETHAZINE HYDROCHLORIDE. [Concomitant]
     Active Substance: PROMETHAZINE HYDROCHLORIDE
  8. DIAZEPAN [Concomitant]
     Active Substance: DIAZEPAM
  9. ZOPICLON [Concomitant]
     Active Substance: ZOPICLONE

REACTIONS (6)
  - Bruxism [Recovered/Resolved]
  - Tardive dyskinesia [Recovered/Resolved]
  - Restlessness [Recovered/Resolved]
  - Tremor [Recovered/Resolved]
  - Facial paralysis [Recovered/Resolved]
  - Skin tightness [Recovered/Resolved]

NARRATIVE: CASE EVENT DATE: 20170607
